FAERS Safety Report 13097444 (Version 1)
Quarter: 2017Q1

REPORT INFORMATION
  Report Type: Spontaneous
  Country: US (occurrence: US)
  Receive Date: 20170107
  Receipt Date: 20170107
  Transmission Date: 20170428
  Serious: Yes (Disabling, Other)
  Sender: FDA-Public Use
  Company Number: None

PATIENT
  Age: 29 Year
  Sex: Female
  Weight: 62.1 kg

DRUGS (1)
  1. AMPHETAMINE ASPARTATE [Suspect]
     Active Substance: AMPHETAMINE ASPARTATE
     Indication: ATTENTION DEFICIT/HYPERACTIVITY DISORDER
     Dosage: ?          QUANTITY:30 CAPSULE(S);?
     Route: 048
     Dates: start: 20170107, end: 20170107

REACTIONS (7)
  - Pain in jaw [None]
  - Vomiting [None]
  - Migraine [None]
  - Dysgeusia [None]
  - Dyspnoea [None]
  - Gingival pain [None]
  - Vision blurred [None]

NARRATIVE: CASE EVENT DATE: 20170107
